FAERS Safety Report 20758457 (Version 3)
Quarter: 2022Q2

REPORT INFORMATION
  Report Type: Report from Study
  Country: US (occurrence: US)
  Receive Date: 20220427
  Receipt Date: 20220623
  Transmission Date: 20220721
  Serious: Yes (Hospitalization, Other)
  Sender: FDA-Public Use
  Company Number: US-BRISTOL-MYERS SQUIBB COMPANY-2022-025434

PATIENT
  Age: 63 Year
  Sex: Female
  Weight: 68.4 kg

DRUGS (2)
  1. POMALYST [Suspect]
     Active Substance: POMALIDOMIDE
     Indication: Plasma cell myeloma
     Dosage: DAILY 21 DAYS
     Route: 048
     Dates: start: 20220324
  2. POMALYST [Suspect]
     Active Substance: POMALIDOMIDE
     Route: 048
     Dates: start: 20220324

REACTIONS (12)
  - Thrombosis [Unknown]
  - Erythema [Unknown]
  - Fall [Unknown]
  - Product dose omission issue [Unknown]
  - Fatigue [Unknown]
  - Rash pruritic [Unknown]
  - Lower limb fracture [Unknown]
  - Chest pain [Unknown]
  - Neck pain [Unknown]
  - Back pain [Unknown]
  - Upper limb fracture [Unknown]
  - Arthropathy [Unknown]

NARRATIVE: CASE EVENT DATE: 20220101
